FAERS Safety Report 15554651 (Version 2)
Quarter: 2025Q3

REPORT INFORMATION
  Report Type: Report from Study
  Country: EU (occurrence: EU)
  Receive Date: 20181026
  Receipt Date: 20250718
  Transmission Date: 20251021
  Serious: Yes (Other)
  Sender: AUROBINDO
  Company Number: EU-AUROBINDO-AUR-APL-2018-052477

PATIENT
  Age: 7 Year
  Sex: Female

DRUGS (1)
  1. AMOXICILLIN [Suspect]
     Active Substance: AMOXICILLIN
     Indication: Product used for unknown indication
     Route: 065

REACTIONS (7)
  - Rhinitis [Recovered/Resolved]
  - Urticaria [Unknown]
  - Face oedema [Unknown]
  - Conjunctivitis [Unknown]
  - Cough [Unknown]
  - Dysphonia [Unknown]
  - Abdominal pain [Unknown]
